FAERS Safety Report 23598072 (Version 1)
Quarter: 2024Q1

REPORT INFORMATION
  Report Type: Spontaneous
  Country: CN (occurrence: CN)
  Receive Date: 20240305
  Receipt Date: 20240305
  Transmission Date: 20240409
  Serious: Yes (Hospitalization, Other)
  Sender: FDA-Public Use
  Company Number: CN-009507513-2403CHN000795

PATIENT
  Age: 79 Year
  Sex: Male
  Weight: 55 kg

DRUGS (2)
  1. JANUVIA [Suspect]
     Active Substance: SITAGLIPTIN PHOSPHATE
     Indication: Diabetes mellitus
     Dosage: 100 MG, QD
     Route: 048
     Dates: start: 20240217, end: 20240219
  2. PIPERACILLIN SODIUM\SULBACTAM SODIUM [Suspect]
     Active Substance: PIPERACILLIN SODIUM\SULBACTAM SODIUM
     Indication: Diabetic foot infection
     Dosage: 3 G, Q12H
     Route: 041
     Dates: start: 20240207, end: 20240219

REACTIONS (10)
  - Pyrexia [Unknown]
  - Rash papular [Unknown]
  - Rash erythematous [Unknown]
  - Pruritus [Unknown]
  - Infection [Unknown]
  - Hypersensitivity [Unknown]
  - Inflammation [Unknown]
  - Hypoproteinaemia [Unknown]
  - Platelet count decreased [Unknown]
  - Arthralgia [Unknown]

NARRATIVE: CASE EVENT DATE: 20240201
